FAERS Safety Report 8032394-2 (Version None)
Quarter: 2012Q1

REPORT INFORMATION
  Report Type: 
  Country: None (occurrence: None)
  Receive Date: 20120109
  Receipt Date: 20120109
  Transmission Date: 20120608
  Serious: No
  Sender: FDA-Public Use
  Company Number: None

PATIENT
  Age: 63 Year
  Sex: Male
  Weight: 81.5 kg

DRUGS (1)
  1. HEPARIN [Suspect]
     Dosage: IV
     Route: 042
     Dates: start: 20111101, end: 20111102

REACTIONS (1)
  - THROMBOCYTOPENIA [None]
